FAERS Safety Report 9481258 (Version 2)
Quarter: 2013Q4

REPORT INFORMATION
  Report Type: Spontaneous
  Country: US (occurrence: US)
  Receive Date: 20130828
  Receipt Date: 20131008
  Transmission Date: 20140711
  Serious: No
  Sender: FDA-Public Use
  Company Number: US-BIOGENIDEC-2013BI078150

PATIENT
  Age: 34 Year
  Sex: Male

DRUGS (2)
  1. AVONEX [Suspect]
     Indication: MULTIPLE SCLEROSIS
     Route: 030
  2. AVONEX [Suspect]
     Indication: MULTIPLE SCLEROSIS
     Route: 030
     Dates: start: 20101128

REACTIONS (9)
  - Hypoaesthesia [Not Recovered/Not Resolved]
  - Abasia [Not Recovered/Not Resolved]
  - Mobility decreased [Recovered/Resolved]
  - Coordination abnormal [Unknown]
  - Gait disturbance [Unknown]
  - General symptom [Unknown]
  - Anxiety [Unknown]
  - Depression [Not Recovered/Not Resolved]
  - Asthenia [Unknown]
